FAERS Safety Report 9865688 (Version 1)
Quarter: 2014Q1

REPORT INFORMATION
  Report Type: Spontaneous
  Country: US (occurrence: US)
  Receive Date: 20140203
  Receipt Date: 20140203
  Transmission Date: 20141002
  Serious: No
  Sender: FDA-Public Use
  Company Number: US-ALLERGAN-1309819US

PATIENT
  Age: 47 Year
  Sex: Female

DRUGS (5)
  1. RESTASIS [Suspect]
     Indication: DRY EYE
     Dosage: 2 UNK, BID
     Route: 047
     Dates: start: 20130627, end: 20130701
  2. REFRESH CELLUVISC SOLUTION [Suspect]
     Indication: DRY EYE
     Dosage: 2 GTT, PRN
     Route: 047
  3. REFRESH PM [Suspect]
     Indication: DRY EYE
     Dosage: UNK, QHS
     Route: 047
  4. FLUROMETHOLONE [Concomitant]
     Indication: BLEPHARITIS
     Dosage: 2 GTT, QAM
     Route: 047
  5. AZASITE [Concomitant]
     Indication: BLEPHARITIS
     Dosage: 2 GTT, QPM
     Route: 047

REACTIONS (6)
  - Eyelid irritation [Recovered/Resolved]
  - Eyelid pain [Recovered/Resolved]
  - Eye disorder [Recovered/Resolved]
  - Erythema of eyelid [Recovered/Resolved]
  - Eye irritation [Recovered/Resolved]
  - Eye irritation [Recovered/Resolved]
